FAERS Safety Report 15749557 (Version 1)
Quarter: 2018Q4

REPORT INFORMATION
  Report Type: Spontaneous
  Country: US (occurrence: US)
  Receive Date: 20181205
  Receipt Date: 20181205
  Transmission Date: 20190205
  Serious: No
  Sender: FDA-Public Use
  Company Number: None

PATIENT
  Age: 54 Year
  Sex: Female

DRUGS (1)
  1. COSENTYX [Suspect]
     Active Substance: SECUKINUMAB
     Dates: start: 201808

REACTIONS (9)
  - Arthritis [None]
  - Autoimmune disorder [None]
  - Pharyngitis streptococcal [None]
  - Anxiety [None]
  - Sinus disorder [None]
  - Peripheral swelling [None]
  - Skin mass [None]
  - Dermatitis allergic [None]
  - Dyspnoea [None]

NARRATIVE: CASE EVENT DATE: 20180817
